FAERS Safety Report 8964281 (Version 1)
Quarter: 2012Q4

REPORT INFORMATION
  Report Type: 
  Country: US (occurrence: US)
  Receive Date: 20121214
  Receipt Date: 20121214
  Transmission Date: 20130627
  Serious: No
  Sender: FDA-Public Use
  Company Number: US-GLAXOSMITHKLINE-A0959210A

PATIENT
  Age: 86 Year
  Sex: Male

DRUGS (5)
  1. AVODART [Suspect]
     Indication: BENIGN PROSTATIC HYPERPLASIA
     Dosage: .5MG Per day
     Route: 048
     Dates: start: 20110721, end: 20111130
  2. THYROID MEDICATION [Concomitant]
  3. CENTRUM [Concomitant]
  4. CALCIUM [Concomitant]
  5. PROSTATE MEDICATION [Concomitant]

REACTIONS (2)
  - Prostatic specific antigen increased [Unknown]
  - Drug ineffective [Unknown]
